FAERS Safety Report 9848708 (Version 1)
Quarter: 2014Q1

REPORT INFORMATION
  Report Type: Spontaneous
  Country: US (occurrence: None)
  Receive Date: 20140127
  Receipt Date: 20140127
  Transmission Date: 20141002
  Serious: Yes (Hospitalization)
  Sender: FDA-Public Use
  Company Number: None

PATIENT
  Age: 72 Year
  Sex: Female

DRUGS (1)
  1. CARBOPLATIN [Suspect]
     Route: 042

REACTIONS (6)
  - Pruritus [None]
  - Rash [None]
  - Confusional state [None]
  - Delirium [None]
  - Drug hypersensitivity [None]
  - Neurological symptom [None]
